FAERS Safety Report 8623131-9 (Version None)
Quarter: 2012Q3

REPORT INFORMATION
  Report Type: 
  Country: None (occurrence: None)
  Receive Date: 20120827
  Receipt Date: 20120817
  Transmission Date: 20120928
  Serious: Yes (Hospitalization)
  Sender: FDA-Public Use
  Company Number: JP-JNJFOC-20120802824

PATIENT
  Age: 62 Year
  Sex: Male

DRUGS (4)
  1. SIMPONI [Suspect]
     Route: 058
     Dates: start: 20120702
  2. SIMPONI [Suspect]
     Route: 058
     Dates: start: 20120507
  3. SIMPONI [Suspect]
     Indication: RHEUMATOID ARTHRITIS
     Route: 058
     Dates: start: 20120604
  4. ETODOLAC [Concomitant]
     Route: 048
     Dates: start: 20120507

REACTIONS (1)
  - PNEUMOCYSTIS JIROVECI PNEUMONIA [None]
